FAERS Safety Report 19690154 (Version 1)
Quarter: 2021Q3

REPORT INFORMATION
  Report Type: Spontaneous
  Country: US (occurrence: US)
  Receive Date: 20210812
  Receipt Date: 20210812
  Transmission Date: 20211014
  Serious: Yes (Death, Hospitalization, Other)
  Sender: FDA-Public Use
  Company Number: US-GLAXOSMITHKLINE-US2021AMR168430

PATIENT
  Age: 19 Year
  Sex: Female

DRUGS (2)
  1. OXCARBAZEPINE. [Suspect]
     Active Substance: OXCARBAZEPINE
     Indication: PRODUCT USED FOR UNKNOWN INDICATION
     Dosage: UNK
  2. BUPROPION HYDROCHLORIDE XL [Suspect]
     Active Substance: BUPROPION HYDROCHLORIDE
     Indication: PRODUCT USED FOR UNKNOWN INDICATION
     Dosage: ESTIMATED 28.2 G
     Route: 048

REACTIONS (23)
  - Dehydration [Unknown]
  - Intentional overdose [Unknown]
  - Mental status changes [Unknown]
  - Hyperhidrosis [Unknown]
  - Ventricular hypokinesia [Unknown]
  - Cardiac arrest [Unknown]
  - Metabolic acidosis [Unknown]
  - Cardiac dysfunction [Unknown]
  - Toxicity to various agents [Fatal]
  - Tachycardia [Unknown]
  - Ventricular fibrillation [Unknown]
  - Electrocardiogram QT prolonged [Unknown]
  - Hypertension [Unknown]
  - Mydriasis [Unknown]
  - Bundle branch block left [Unknown]
  - Electrocardiogram QRS complex prolonged [Unknown]
  - Cardiogenic shock [Unknown]
  - Seizure [Unknown]
  - Hypotension [Unknown]
  - Hypothermia [Unknown]
  - Cardiopulmonary failure [Fatal]
  - Unresponsive to stimuli [Unknown]
  - Hyperphosphataemia [Unknown]
